FAERS Safety Report 9409603 (Version 12)
Quarter: 2014Q1

REPORT INFORMATION
  Report Type: Spontaneous
  Country: US (occurrence: US)
  Receive Date: 20130719
  Receipt Date: 20140224
  Transmission Date: 20141002
  Serious: Yes (Other)
  Sender: FDA-Public Use
  Company Number: PHEH2013US015320

PATIENT
  Sex: Female

DRUGS (7)
  1. ZOMETA [Suspect]
     Indication: PLASMA CELL MYELOMA
     Dosage: 4 MG,
     Route: 042
     Dates: end: 201203
  2. ZOMETA [Suspect]
     Indication: PROPHYLAXIS
  3. ZOMETA [Suspect]
     Indication: BONE DISORDER
  4. AREDIA [Suspect]
     Route: 042
  5. VELCADE [Concomitant]
  6. DECADRAN [Concomitant]
  7. REVLIMID [Concomitant]

REACTIONS (81)
  - Injury [Unknown]
  - Hypertension [Unknown]
  - Type V hyperlipidaemia [Unknown]
  - Osteoporosis [Unknown]
  - Type 2 diabetes mellitus [Unknown]
  - Renal failure chronic [Unknown]
  - Osteonecrosis of jaw [Unknown]
  - Pain in jaw [Unknown]
  - Soft tissue disorder [Unknown]
  - Exposed bone in jaw [Unknown]
  - Bone disorder [Unknown]
  - Bone fragmentation [Unknown]
  - Lymphadenopathy [Unknown]
  - Osteomyelitis [Unknown]
  - Cardiomegaly [Unknown]
  - Spinal osteoarthritis [Unknown]
  - Osteopenia [Unknown]
  - Dizziness [Unknown]
  - Upper respiratory tract infection [Unknown]
  - Device issue [Unknown]
  - Depression [Unknown]
  - Diabetic foot [Unknown]
  - Glucose tolerance impaired [Unknown]
  - Renal impairment [Unknown]
  - Dyspnoea [Unknown]
  - Sinus headache [Unknown]
  - Bronchitis [Unknown]
  - Herpes zoster [Unknown]
  - Breast mass [Unknown]
  - Anaemia [Unknown]
  - Arthritis [Unknown]
  - Balance disorder [Unknown]
  - Essential hypertension [Unknown]
  - Dementia [Unknown]
  - Amnesia [Unknown]
  - Renal atrophy [Unknown]
  - Renal hypertrophy [Unknown]
  - Vertigo [Unknown]
  - Uterine leiomyoma [Unknown]
  - Cerebral atrophy [Unknown]
  - Central nervous system lesion [Unknown]
  - Pulmonary mass [Unknown]
  - Encephalomalacia [Unknown]
  - Haemorrhoids [Unknown]
  - Large intestine polyp [Unknown]
  - Large intestine benign neoplasm [Unknown]
  - Tremor [Unknown]
  - Chest pain [Unknown]
  - Lung infiltration [Unknown]
  - Mitral valve disease [Unknown]
  - Tinnitus [Unknown]
  - Atrophic vulvovaginitis [Unknown]
  - Duodenal ulcer [Unknown]
  - Urinary tract infection [Unknown]
  - Pneumonia [Unknown]
  - Mitral valve incompetence [Unknown]
  - Tricuspid valve incompetence [Unknown]
  - Pulmonary valve incompetence [Unknown]
  - Dementia Alzheimer^s type [Unknown]
  - Hypoacusis [Unknown]
  - Vitamin B12 deficiency [Unknown]
  - Plasma cell myeloma [Unknown]
  - Malignant neoplasm progression [Unknown]
  - Weight decreased [Unknown]
  - Emphysema [Unknown]
  - Pulmonary fibrosis [Unknown]
  - Goitre [Unknown]
  - Thrombocytopenia [Unknown]
  - Gastrooesophageal reflux disease [Unknown]
  - Monoclonal gammopathy [Unknown]
  - Pelvic pain [Unknown]
  - Diarrhoea [Unknown]
  - Arthralgia [Unknown]
  - Bone pain [Unknown]
  - Abdominal pain [Unknown]
  - Obesity [Unknown]
  - Muscle spasms [Unknown]
  - Cough [Unknown]
  - Dry throat [Unknown]
  - Pain in extremity [Unknown]
  - Headache [Unknown]
